FAERS Safety Report 22661366 (Version 1)
Quarter: 2023Q2

REPORT INFORMATION
  Report Type: Spontaneous
  Country: FR (occurrence: FR)
  Receive Date: 20230630
  Receipt Date: 20230630
  Transmission Date: 20230722
  Serious: Yes (Hospitalization)
  Sender: FDA-Public Use
  Company Number: None

PATIENT
  Age: 33 Year
  Sex: Female

DRUGS (1)
  1. CABERGOLINE [Suspect]
     Active Substance: CABERGOLINE
     Indication: Lactation inhibition therapy
     Dates: start: 20230520, end: 20230520

REACTIONS (3)
  - Bradycardia [Not Recovered/Not Resolved]
  - Chest discomfort [Recovered/Resolved]
  - Neck pain [Recovered/Resolved]

NARRATIVE: CASE EVENT DATE: 20230523
